FAERS Safety Report 11253288 (Version 1)
Quarter: 2015Q3

REPORT INFORMATION
  Report Type: Spontaneous
  Country: US (occurrence: US)
  Receive Date: 20150709
  Receipt Date: 20150709
  Transmission Date: 20151125
  Serious: Yes (Other)
  Sender: FDA-Public Use
  Company Number: US-TEVA-547780USA

PATIENT

DRUGS (1)
  1. VENLAFAXINE [Suspect]
     Active Substance: VENLAFAXINE HYDROCHLORIDE
     Dosage: FORM OF ADM UNKNOWN

REACTIONS (7)
  - Suicidal ideation [Unknown]
  - Malaise [Unknown]
  - Abdominal discomfort [Unknown]
  - Product substitution issue [Unknown]
  - Dizziness [Unknown]
  - Nausea [Unknown]
  - Emotional disorder [Unknown]
